FAERS Safety Report 18898963 (Version 1)
Quarter: 2021Q1

REPORT INFORMATION
  Report Type: Spontaneous
  Country: US (occurrence: US)
  Receive Date: 20210216
  Receipt Date: 20210216
  Transmission Date: 20210420
  Serious: Yes (Other)
  Sender: FDA-Public Use
  Company Number: US-NESTLEHEALTHSCIENCE-2021000011

PATIENT
  Age: 84 Year
  Sex: Female
  Weight: 71 kg

DRUGS (5)
  1. PRESERVISION [Concomitant]
     Active Substance: MINERALS\VITAMINS
     Indication: DRY EYE
     Dosage: NOT PROVIDED
  2. DEXILANT [Concomitant]
     Active Substance: DEXLANSOPRAZOLE
     Dosage: AT 8PM ON EMPTY STOMACH
  3. ZENPEP [Suspect]
     Active Substance: PANCRELIPASE AMYLASE\PANCRELIPASE LIPASE\PANCRELIPASE PROTEASE
     Indication: PANCREATIC DISORDER
     Dosage: AS DIRECTED WITH MEALS
     Route: 048
  4. PLAVIX [Concomitant]
     Active Substance: CLOPIDOGREL BISULFATE
     Indication: ANTICOAGULANT THERAPY
     Dosage: ON IT FOR 30 DAYS ONLY. TAKES IT AT 6PM, 10 HOURS DIFFERENCE FROM DEXILANT
     Dates: start: 2021
  5. ZENPEP [Suspect]
     Active Substance: PANCRELIPASE AMYLASE\PANCRELIPASE LIPASE\PANCRELIPASE PROTEASE
     Indication: PANCREATIC DISORDER
     Dosage: AS DIRECTED WITH MEALS
     Route: 048
     Dates: start: 2020

REACTIONS (5)
  - Mesenteric artery stent insertion [Recovering/Resolving]
  - Flatulence [Recovered/Resolved]
  - Pancreatitis relapsing [Recovering/Resolving]
  - Malaise [Recovering/Resolving]
  - Tooth disorder [Not Recovered/Not Resolved]

NARRATIVE: CASE EVENT DATE: 2020
